FAERS Safety Report 13566990 (Version 3)
Quarter: 2017Q3

REPORT INFORMATION
  Report Type: Spontaneous
  Country: US (occurrence: US)
  Receive Date: 20170522
  Receipt Date: 20170725
  Transmission Date: 20171127
  Serious: Yes (Death, Life-Threatening, Hospitalization, Other)
  Sender: FDA-Public Use
  Company Number: US-CONCORDIA PHARMACEUTICALS INC.-GSH201705-003023

PATIENT
  Age: 21 Year
  Sex: Female

DRUGS (10)
  1. ACICLOVIR [Suspect]
     Active Substance: ACYCLOVIR
     Route: 065
  2. MYCOPHENOLATE MOFETIL. [Suspect]
     Active Substance: MYCOPHENOLATE MOFETIL
     Indication: PRODUCT USED FOR UNKNOWN INDICATION
     Route: 065
  3. HYDROXYCHLOROQUINE [Suspect]
     Active Substance: HYDROXYCHLOROQUINE
     Indication: PRODUCT USED FOR UNKNOWN INDICATION
     Route: 065
  4. RIFAMPIN. [Concomitant]
     Active Substance: RIFAMPIN
  5. ETHAMBUTOL [Concomitant]
     Active Substance: ETHAMBUTOL HYDROCHLORIDE
  6. PREDNISONE. [Suspect]
     Active Substance: PREDNISONE
     Indication: PRODUCT USED FOR UNKNOWN INDICATION
     Route: 065
  7. ACICLOVIR [Suspect]
     Active Substance: ACYCLOVIR
     Indication: VARICELLA ZOSTER VIRUS INFECTION
     Route: 065
  8. PYRIDOXINE [Concomitant]
     Active Substance: PYRIDOXINE
  9. PYRAZINAMIDE. [Concomitant]
     Active Substance: PYRAZINAMIDE
  10. ISONIAZID. [Concomitant]
     Active Substance: ISONIAZID

REACTIONS (15)
  - Pyrexia [Unknown]
  - Tachycardia [Unknown]
  - Drug ineffective [Unknown]
  - Asthenia [Unknown]
  - Viral vasculitis [Fatal]
  - Mental status changes [Unknown]
  - VIth nerve paralysis [Fatal]
  - Varicella zoster virus infection [Fatal]
  - Hyporesponsive to stimuli [Unknown]
  - Brain oedema [Unknown]
  - Haemorrhagic cerebral infarction [Fatal]
  - Computerised tomogram abnormal [Unknown]
  - Lethargy [Unknown]
  - CSF white blood cell count increased [Unknown]
  - CSF protein increased [Unknown]
